FAERS Safety Report 6100852-3 (Version None)
Quarter: 2009Q1

REPORT INFORMATION
  Report Type: 
  Country: None (occurrence: None)
  Receive Date: 20090304
  Receipt Date: 20090223
  Transmission Date: 20090719
  Serious: Yes (Hospitalization)
  Sender: FDA-Public Use
  Company Number: GB-BAXTER-2009BH003173

PATIENT
  Sex: Male

DRUGS (1)
  1. ADVATE [Suspect]
     Indication: DRUG USE FOR UNKNOWN INDICATION
     Route: 065

REACTIONS (3)
  - CATHETER SITE INFECTION [None]
  - DEVICE BREAKAGE [None]
  - PYREXIA [None]
